FAERS Safety Report 8989122 (Version 1)
Quarter: 2012Q4

REPORT INFORMATION
  Report Type: Spontaneous
  Country: IT (occurrence: None)
  Receive Date: 20121219
  Receipt Date: 20121219
  Transmission Date: 20130627
  Serious: Yes (Hospitalization)
  Sender: FDA-Public Use
  Company Number: SP06280

PATIENT
  Age: 86 Year
  Sex: Female

DRUGS (7)
  1. XIFAXAN [Suspect]
     Indication: ACUTE DIARRHEA
     Route: 048
     Dates: start: 20121026, end: 20121030
  2. OMEPRAZOLE [Suspect]
     Route: 048
     Dates: start: 20121027, end: 20121030
  3. CAPTOPRIL AND HYDROCHLOROTHIAZIDE [Suspect]
     Route: 048
     Dates: start: 20121023, end: 20121031
  4. LASIX [Suspect]
     Route: 042
     Dates: start: 20121027, end: 20121030
  5. SOTALOL [Concomitant]
  6. ENOXAPARIN [Concomitant]
  7. FOLIC ACID [Concomitant]

REACTIONS (6)
  - Diarrhoea [None]
  - Pulmonary embolism [None]
  - Leukopenia [None]
  - Neutropenia [None]
  - Eosinophil count increased [None]
  - Monocytosis [None]
